FAERS Safety Report 4846052-6 (Version None)
Quarter: 2005Q4

REPORT INFORMATION
  Report Type: 
  Country: None (occurrence: None)
  Receive Date: 20051130
  Receipt Date: 20051122
  Transmission Date: 20060501
  Serious: Yes (Other)
  Sender: FDA-Public Use
  Company Number: 200514303BCC

PATIENT
  Age: 21 Year
  Sex: Female
  Weight: 65.7716 kg

DRUGS (2)
  1. ALEVE [Suspect]
     Indication: HEADACHE
     Dosage: 440 MG, TOTAL DAILY, ORAL
     Route: 048
     Dates: start: 20051026
  2. ALEVE [Suspect]
     Indication: PAIN IN EXTREMITY
     Dosage: 440 MG, TOTAL DAILY, ORAL
     Route: 048
     Dates: start: 20051026

REACTIONS (1)
  - CHEST PAIN [None]
